FAERS Safety Report 4511256-9 (Version None)
Quarter: 2004Q4

REPORT INFORMATION
  Report Type: 
  Country: None (occurrence: None)
  Receive Date: 20041122
  Receipt Date: 20041122
  Transmission Date: 20050328
  Serious: Yes (Life-Threatening, Hospitalization, Disabling)
  Sender: FDA-Public Use
  Company Number: None

PATIENT
  Age: 42 Year
  Sex: Female
  Weight: 92.5338 kg

DRUGS (3)
  1. GABITRIL [Suspect]
     Indication: BACK PAIN
     Dosage: 4MG SLOW INCREASE ORAL
     Route: 048
     Dates: start: 20040925, end: 20041012
  2. GABITRIL [Suspect]
     Indication: NEUROPATHY
     Dosage: 4MG SLOW INCREASE ORAL
     Route: 048
     Dates: start: 20040925, end: 20041012
  3. GABITRIL [Suspect]
     Indication: PAIN IN EXTREMITY
     Dosage: 4MG SLOW INCREASE ORAL
     Route: 048
     Dates: start: 20040925, end: 20041012

REACTIONS (11)
  - AMNESIA [None]
  - CONFUSIONAL STATE [None]
  - DEPRESSED LEVEL OF CONSCIOUSNESS [None]
  - DIARRHOEA [None]
  - DIZZINESS [None]
  - FEELING ABNORMAL [None]
  - INSOMNIA [None]
  - MOTOR DYSFUNCTION [None]
  - NAUSEA [None]
  - ROAD TRAFFIC ACCIDENT [None]
  - THINKING ABNORMAL [None]
